FAERS Safety Report 25758990 (Version 3)
Quarter: 2025Q4

REPORT INFORMATION
  Report Type: Spontaneous
  Country: EU (occurrence: EU)
  Receive Date: 20250904
  Receipt Date: 20251003
  Transmission Date: 20260118
  Serious: Yes (Life-Threatening, Other)
  Sender: EXELIXIS
  Company Number: EU-IPSEN Group, Research and Development-2025-21119

PATIENT
  Age: 66 Year
  Sex: Male

DRUGS (3)
  1. CABOMETYX [Suspect]
     Active Substance: CABOZANTINIB S-MALATE
     Indication: Renal cell carcinoma
     Dosage: 60 MG
     Dates: start: 202111
  2. CABOMETYX [Suspect]
     Active Substance: CABOZANTINIB S-MALATE
     Dosage: 40 MG
     Dates: start: 202407
  3. NIVOLUMAB [Suspect]
     Active Substance: NIVOLUMAB
     Indication: Renal cell carcinoma
     Dosage: UNK
     Dates: start: 202111, end: 202407

REACTIONS (6)
  - Osteonecrosis [Unknown]
  - Disease progression [Unknown]
  - Vomiting [Unknown]
  - Stomatitis [Unknown]
  - Decreased appetite [Unknown]
  - Weight decreased [Unknown]

NARRATIVE: CASE EVENT DATE: 20240301
